FAERS Safety Report 9004425 (Version 3)
Quarter: 2013Q1

REPORT INFORMATION
  Report Type: Spontaneous
  Country: JP (occurrence: JP)
  Receive Date: 20130108
  Receipt Date: 20130306
  Transmission Date: 20140127
  Serious: Yes (Death, Hospitalization)
  Sender: FDA-Public Use
  Company Number: JP-ROCHE-1175083

PATIENT
  Age: 40 Year
  Sex: Female

DRUGS (2)
  1. ROCEPHIN [Suspect]
     Indication: INFECTION
     Route: 042
  2. DANTRIUM [Concomitant]
     Indication: NEUROLEPTIC MALIGNANT SYNDROME
     Route: 065

REACTIONS (3)
  - Female genital tract fistula [Fatal]
  - Clostridium difficile infection [Fatal]
  - Pseudomembranous colitis [Recovering/Resolving]
